FAERS Safety Report 20864115 (Version 2)
Quarter: 2022Q2

REPORT INFORMATION
  Report Type: Report from Study
  Country: US (occurrence: US)
  Receive Date: 20220523
  Receipt Date: 20220524
  Transmission Date: 20220720
  Serious: Yes (Hospitalization)
  Sender: FDA-Public Use
  Company Number: US-JNJFOC-20220532437

PATIENT
  Age: 26 Year
  Sex: Male
  Weight: 71.732 kg

DRUGS (2)
  1. INFLIXIMAB [Suspect]
     Active Substance: INFLIXIMAB
     Indication: Inflammatory bowel disease
     Route: 042
     Dates: start: 20090706, end: 20090817
  2. STELARA [Concomitant]
     Active Substance: USTEKINUMAB
     Dosage: DATE OF LAST ADMINISTRATION PRIOR TO THE EVENT WAS ON 22-APR-2022

REACTIONS (1)
  - Clostridium difficile colitis [Not Recovered/Not Resolved]

NARRATIVE: CASE EVENT DATE: 20220429
